FAERS Safety Report 7017091-4 (Version None)
Quarter: 2010Q3

REPORT INFORMATION
  Report Type: 
  Country: None (occurrence: None)
  Receive Date: 20100928
  Receipt Date: 20100922
  Transmission Date: 20110219
  Serious: Yes (Hospitalization)
  Sender: FDA-Public Use
  Company Number: US-BIOGENIDEC-2010BI010945

PATIENT
  Age: 47 Year
  Sex: Female

DRUGS (1)
  1. TYSABRI [Suspect]
     Indication: MULTIPLE SCLEROSIS
     Route: 042
     Dates: start: 20070504, end: 20100331

REACTIONS (27)
  - ANAEMIA [None]
  - BLISTER [None]
  - BRONCHITIS [None]
  - CHRONIC OBSTRUCTIVE PULMONARY DISEASE [None]
  - CORNEAL DEGENERATION [None]
  - CRYING [None]
  - CSF VOLUME INCREASED [None]
  - DECREASED APPETITE [None]
  - DIPLOPIA [None]
  - FALL [None]
  - FATIGUE [None]
  - GAIT DISTURBANCE [None]
  - LACERATION [None]
  - MALAISE [None]
  - MEMORY IMPAIRMENT [None]
  - MULTIPLE SCLEROSIS [None]
  - OPTIC NEURITIS [None]
  - PAIN [None]
  - PLEURISY [None]
  - PNEUMONIA [None]
  - RASH GENERALISED [None]
  - SCOLIOSIS [None]
  - SEPSIS [None]
  - TREMOR [None]
  - URINARY TRACT INFECTION [None]
  - VISUAL ACUITY REDUCED [None]
  - WEIGHT DECREASED [None]
